FAERS Safety Report 20839844 (Version 1)
Quarter: 2022Q2

REPORT INFORMATION
  Report Type: Spontaneous
  Country: US (occurrence: None)
  Receive Date: 20220516
  Receipt Date: 20220516
  Transmission Date: 20220721
  Serious: Yes (Hospitalization)
  Sender: FDA-Public Use
  Company Number: None

PATIENT
  Age: 82 Year
  Sex: Male

DRUGS (1)
  1. ZYTIGA [Suspect]
     Active Substance: ABIRATERONE ACETATE
     Indication: Prostate cancer
     Dosage: FREQUENCY : DAILY;?
     Route: 048
     Dates: start: 202202

REACTIONS (6)
  - Hot flush [None]
  - Fatigue [None]
  - Cardiac disorder [None]
  - Oesophageal rupture [None]
  - Oesophageal haemorrhage [None]
  - Therapy interrupted [None]

NARRATIVE: CASE EVENT DATE: 20220409
